FAERS Safety Report 12732661 (Version 1)
Quarter: 2016Q3

REPORT INFORMATION
  Report Type: Spontaneous
  Country: CA (occurrence: CA)
  Receive Date: 20160912
  Receipt Date: 20160912
  Transmission Date: 20161109
  Serious: Yes (Hospitalization)
  Sender: FDA-Public Use
  Company Number: CA-SHIRE-CA201612196

PATIENT

DRUGS (1)
  1. INTUNIV [Suspect]
     Active Substance: GUANFACINE HYDROCHLORIDE
     Indication: PRODUCT USED FOR UNKNOWN INDICATION
     Dosage: UNK, UNKNOWN
     Route: 048

REACTIONS (5)
  - Affect lability [Recovered/Resolved]
  - Psychomotor hyperactivity [Recovered/Resolved]
  - Drug dose titration not performed [Recovered/Resolved]
  - Impulsive behaviour [Recovered/Resolved]
  - Insomnia [Recovered/Resolved]
